FAERS Safety Report 21146890 (Version 1)
Quarter: 2022Q3

REPORT INFORMATION
  Report Type: Spontaneous
  Country: US (occurrence: None)
  Receive Date: 20220728
  Receipt Date: 20220728
  Transmission Date: 20221027
  Serious: No
  Sender: FDA-Public Use
  Company Number: None

PATIENT
  Age: 73 Year
  Sex: Male
  Weight: 72.9 kg

DRUGS (15)
  1. POMALYST [Suspect]
     Active Substance: POMALIDOMIDE
     Indication: Plasma cell myeloma
     Dosage: OTHER FREQUENCY : 21 ON/7 OFF;?
     Route: 048
     Dates: start: 20220608
  2. amlodipine 2.5 mg table [Concomitant]
  3. Avastin 25 mg/mL intravenous solution [Concomitant]
  4. Centrum Silver 0.4 mg-300 mcg-250 mcg tablet [Concomitant]
  5. Creon 36,000 unit-114,000 unit-180,000 unit capsule,delayed release [Concomitant]
  6. DEXAMETHASONE [Concomitant]
     Active Substance: DEXAMETHASONE
  7. Dexilant 60 mg capsule, delayed release [Concomitant]
  8. Lomotil 2.5 mg-0.025 mg Tab [Concomitant]
  9. Lunesta 2 mg tablet [Concomitant]
  10. magnesium oxide 400 mg capsule [Concomitant]
  11. metoprolol succinate ER 25 mg capsule sprinkle, ext. release 24 hr [Concomitant]
  12. pantoprazole 40 mg tablet,delayed release [Concomitant]
  13. pravastatin 40 mg tablet [Concomitant]
  14. ranitidine 150 mg capsule [Concomitant]
  15. Zofran 4 mg tablet [Concomitant]

REACTIONS (1)
  - Diarrhoea [None]

NARRATIVE: CASE EVENT DATE: 20220728
